FAERS Safety Report 9689290 (Version 1)
Quarter: 2013Q4

REPORT INFORMATION
  Report Type: Spontaneous
  Country: IT (occurrence: IT)
  Receive Date: 20131114
  Receipt Date: 20131114
  Transmission Date: 20140711
  Serious: Yes (Hospitalization)
  Sender: FDA-Public Use
  Company Number: IT-ASTRAZENECA-2013SE81847

PATIENT
  Age: 32745 Day
  Sex: Male
  Weight: 75 kg

DRUGS (2)
  1. SEROQUEL [Suspect]
     Indication: DEPRESSION
     Dosage: HALF TABLET OF 25 MG IN THE MORNING. IN THE EVENING ONE TABLET OF SEROQUEL 25 MG
     Route: 048
  2. ZOLOFT [Suspect]
     Indication: DEPRESSION
     Route: 048

REACTIONS (2)
  - Sopor [Recovering/Resolving]
  - Hypotension [Recovering/Resolving]
